FAERS Safety Report 17521181 (Version 1)
Quarter: 2020Q1

REPORT INFORMATION
  Report Type: Spontaneous
  Country: JP (occurrence: JP)
  Receive Date: 20200310
  Receipt Date: 20200310
  Transmission Date: 20200409
  Serious: Yes (Hospitalization, Other)
  Sender: FDA-Public Use
  Company Number: JP-PFIZER INC-2020103039

PATIENT
  Age: 41 Year
  Sex: Male

DRUGS (2)
  1. LORLATINIB [Suspect]
     Active Substance: LORLATINIB
     Indication: NON-SMALL CELL LUNG CANCER
  2. LORLATINIB [Suspect]
     Active Substance: LORLATINIB
     Indication: ALK GENE REARRANGEMENT POSITIVE
     Dosage: UNK

REACTIONS (1)
  - Pulmonary embolism [Recovering/Resolving]
